FAERS Safety Report 6059951-7 (Version None)
Quarter: 2009Q1

REPORT INFORMATION
  Report Type: 
  Country: None (occurrence: None)
  Receive Date: 20090130
  Receipt Date: 20090126
  Transmission Date: 20090719
  Serious: No
  Sender: FDA-Public Use
  Company Number: US-B.I. PHARMACEUTICALS,INC./RIDGEFIELD-2009-BP-00959BP

PATIENT
  Sex: Male

DRUGS (5)
  1. MICARDIS [Suspect]
     Indication: HYPERTENSION
     Dosage: 20MG
     Route: 048
     Dates: start: 20090120
  2. SPIRONOLACTONE [Concomitant]
     Indication: HYPERTENSION
     Dosage: 200MG
  3. LEXAPRO [Concomitant]
     Indication: ANXIETY
     Dosage: 10MG
  4. LISINOPRIL [Concomitant]
     Indication: HYPERTENSION
  5. ASPIRIN [Concomitant]
     Indication: ANTICOAGULANT THERAPY

REACTIONS (5)
  - DRUG INEFFECTIVE [None]
  - FEELING ABNORMAL [None]
  - HOT FLUSH [None]
  - HYPERHIDROSIS [None]
  - SENSATION OF FOREIGN BODY [None]
